FAERS Safety Report 22160303 (Version 1)
Quarter: 2023Q1

REPORT INFORMATION
  Report Type: Spontaneous
  Country: US (occurrence: US)
  Receive Date: 20230331
  Receipt Date: 20230331
  Transmission Date: 20230418
  Serious: Yes (Other)
  Sender: FDA-Public Use
  Company Number: US-002147023-NVSC2023US070527

PATIENT

DRUGS (3)
  1. CARBOPLATIN [Suspect]
     Active Substance: CARBOPLATIN
     Indication: Triple negative breast cancer
     Dosage: (AUC 2) GIVEN WEEKLY IN A 21-DAY CYCLE
     Route: 065
  2. PACLITAXEL [Suspect]
     Active Substance: PACLITAXEL
     Indication: Triple negative breast cancer
     Dosage: 80 MG/M2, QW(GIVEN WEEKLY IN A 21-DAY CYCLE)
     Route: 065
  3. VELIPARIB [Suspect]
     Active Substance: VELIPARIB
     Indication: Triple negative breast cancer
     Dosage: 50-200 MG , BID
     Route: 048

REACTIONS (2)
  - Neutropenia [Unknown]
  - Product use in unapproved indication [Unknown]
